FAERS Safety Report 18203156 (Version 1)
Quarter: 2020Q3

REPORT INFORMATION
  Report Type: Spontaneous
  Country: ID (occurrence: ID)
  Receive Date: 20200827
  Receipt Date: 20200827
  Transmission Date: 20201103
  Serious: Yes (Other)
  Sender: FDA-Public Use
  Company Number: ID-ACCORD-197406

PATIENT
  Age: 69 Year
  Sex: Male

DRUGS (4)
  1. DEXAMETHASONE. [Concomitant]
     Active Substance: DEXAMETHASONE
     Route: 042
  2. CARBOPLATIN. [Suspect]
     Active Substance: CARBOPLATIN
     Indication: NASOPHARYNGEAL CANCER STAGE III
     Dosage: 100 MG IN A 500 CC 0.9% NACL SOLUTION IN 90 MINUTES.
  3. ONDANSETRON [Concomitant]
     Active Substance: ONDANSETRON
     Route: 042
  4. SODIUM CHLORIDE. [Concomitant]
     Active Substance: SODIUM CHLORIDE
     Dosage: 0.9%

REACTIONS (4)
  - Stomatitis [Recovered/Resolved]
  - Angular cheilitis [Recovered/Resolved]
  - Oral candidiasis [Recovered/Resolved]
  - Gingivitis [Recovering/Resolving]
